FAERS Safety Report 4360114-1 (Version None)
Quarter: 2004Q2

REPORT INFORMATION
  Report Type: 
  Country: None (occurrence: None)
  Receive Date: 20040514
  Receipt Date: 20040503
  Transmission Date: 20050107
  Serious: Yes (Hospitalization)
  Sender: FDA-Public Use
  Company Number: 8006251

PATIENT
  Age: 9 Year
  Sex: Male

DRUGS (1)
  1. KEPPRA [Suspect]
     Indication: EPILEPSY
     Dosage: 500 MG 2/D PO
     Route: 048
     Dates: start: 20031001, end: 20040428

REACTIONS (5)
  - APATHY [None]
  - BLOOD AMYLASE INCREASED [None]
  - LIPASE INCREASED [None]
  - SOMNOLENCE [None]
  - VOMITING [None]
